FAERS Safety Report 12579821 (Version 4)
Quarter: 2016Q3

REPORT INFORMATION
  Report Type: Spontaneous
  Country: US (occurrence: US)
  Receive Date: 20160721
  Receipt Date: 20160912
  Transmission Date: 20161109
  Serious: Yes (Other)
  Sender: FDA-Public Use
  Company Number: US-PFIZER INC-2016352230

PATIENT
  Age: 65 Year
  Sex: Female
  Weight: 57.15 kg

DRUGS (4)
  1. SERTRALINE HCL [Suspect]
     Active Substance: SERTRALINE HYDROCHLORIDE
     Indication: POST-TRAUMATIC STRESS DISORDER
     Dosage: UNK
     Dates: start: 2013, end: 2014
  2. ZOLOFT [Suspect]
     Active Substance: SERTRALINE HYDROCHLORIDE
     Indication: POST-TRAUMATIC STRESS DISORDER
     Dosage: UNK
     Dates: start: 2014
  3. ZOLOFT [Suspect]
     Active Substance: SERTRALINE HYDROCHLORIDE
     Indication: ANXIETY
     Dosage: 200 MG, 1X/DAY (ONCE IN THE MORNING)
     Route: 048
     Dates: start: 2003
  4. ALPRAZOLAM. [Concomitant]
     Active Substance: ALPRAZOLAM
     Indication: ANXIETY
     Dosage: 1 MG, 4X/DAY
     Dates: start: 2013

REACTIONS (8)
  - Insomnia [Unknown]
  - Deafness [Unknown]
  - Altered state of consciousness [Unknown]
  - Dizziness [Recovered/Resolved]
  - Heat stroke [Unknown]
  - Abdominal discomfort [Unknown]
  - Agoraphobia [Unknown]
  - Stress [Unknown]

NARRATIVE: CASE EVENT DATE: 2014
